FAERS Safety Report 4730045-3 (Version None)
Quarter: 2005Q3

REPORT INFORMATION
  Report Type: 
  Country: None (occurrence: None)
  Receive Date: 20050801
  Receipt Date: 20050720
  Transmission Date: 20060218
  Serious: Yes (Other)
  Sender: FDA-Public Use
  Company Number: US-JNJFOC-20050704011

PATIENT
  Sex: Female
  Weight: 36.29 kg

DRUGS (6)
  1. REMICADE [Suspect]
     Indication: CROHN'S DISEASE
     Route: 042
  2. REMICADE [Suspect]
     Indication: RHEUMATOID ARTHRITIS
     Route: 042
  3. FLAGYL [Concomitant]
  4. METHOTREXATE [Concomitant]
  5. CALCIUM GLUCONATE [Concomitant]
  6. PROTONIX [Concomitant]

REACTIONS (12)
  - ASTHENIA [None]
  - COUGH [None]
  - DYSPNOEA [None]
  - FALL [None]
  - FATIGUE [None]
  - HIP FRACTURE [None]
  - INFECTION [None]
  - NAUSEA [None]
  - PELVIC FRACTURE [None]
  - PUBIC RAMI FRACTURE [None]
  - PYREXIA [None]
  - URINARY INCONTINENCE [None]
